FAERS Safety Report 17416081 (Version 1)
Quarter: 2020Q1

REPORT INFORMATION
  Report Type: Spontaneous
  Country: US (occurrence: US)
  Receive Date: 20200213
  Receipt Date: 20200213
  Transmission Date: 20200409
  Serious: No
  Sender: FDA-Public Use
  Company Number: US-JNJFOC-20200140575

PATIENT
  Age: 73 Year
  Sex: Male
  Weight: 98.52 kg

DRUGS (1)
  1. ERDAFITINIB. [Suspect]
     Active Substance: ERDAFITINIB
     Indication: BLADDER CANCER
     Route: 048

REACTIONS (2)
  - Leukoplakia [Unknown]
  - Stomatitis [Unknown]
